FAERS Safety Report 7402110-3 (Version None)
Quarter: 2011Q1

REPORT INFORMATION
  Report Type: 
  Country: None (occurrence: None)
  Receive Date: 20110330
  Receipt Date: 20110316
  Transmission Date: 20110831
  Serious: Yes (Hospitalization, Other)
  Sender: FDA-Public Use
  Company Number: 2011AP000360

PATIENT
  Age: 36 Year
  Sex: Female

DRUGS (10)
  1. TOPIRAMATE [Suspect]
     Indication: EPILEPSY
     Dosage: 250 MG; PO; QD
     Route: 048
  2. OXCARBAZEPINE [Suspect]
     Indication: EPILEPSY
     Dosage: 1350 MG; QD, 1200 MG; QD, 300 MG; QD
  3. LAMOTRIGINE [Concomitant]
  4. PHENOBARBITAL (PHENOBARBITAL) [Concomitant]
  5. VIGABATRIN (VIGABATRIN) [Concomitant]
  6. VALPROATE SODIUM [Concomitant]
  7. LACOSAMIDE [Suspect]
     Indication: EPILEPSY
     Dosage: 100 MG; QD, 200 MG; QD
  8. GABAPENTIN [Concomitant]
  9. CARBAMAZEPINE [Concomitant]
  10. PHENYTOIN [Suspect]
     Indication: EPILEPSY
     Dosage: 150 MG; QD

REACTIONS (6)
  - NEUROTOXICITY [None]
  - DRUG INTERACTION [None]
  - DIPLOPIA [None]
  - CONVULSION [None]
  - BALANCE DISORDER [None]
  - CONDITION AGGRAVATED [None]
